FAERS Safety Report 23763435 (Version 1)
Quarter: 2024Q2

REPORT INFORMATION
  Report Type: Spontaneous
  Country: CA (occurrence: CA)
  Receive Date: 20240419
  Receipt Date: 20240419
  Transmission Date: 20240716
  Serious: Yes (Other)
  Sender: FDA-Public Use
  Company Number: CA-ANIPHARMA-2024-CA-002171

PATIENT
  Age: 67 Year
  Sex: Female

DRUGS (11)
  1. PROPRANOLOL HYDROCHLORIDE [Suspect]
     Active Substance: PROPRANOLOL HYDROCHLORIDE
     Indication: Product used for unknown indication
  2. PANTOPRAZOLE [Suspect]
     Active Substance: PANTOPRAZOLE
  3. VALACYCLOVIR [Suspect]
     Active Substance: VALACYCLOVIR HYDROCHLORIDE
  4. FILGRASTIM [Suspect]
     Active Substance: FILGRASTIM
  5. ALLOPURINOL [Suspect]
     Active Substance: ALLOPURINOL
  6. AMLODIPINE [Suspect]
     Active Substance: AMLODIPINE BESYLATE
  7. ATOVAQUONE [Suspect]
     Active Substance: ATOVAQUONE
     Route: 048
  8. CITALOPRAM HYDROBROMIDE [Suspect]
     Active Substance: CITALOPRAM HYDROBROMIDE
  9. FENTANYL [Suspect]
     Active Substance: FENTANYL\FENTANYL CITRATE
  10. LORATADINE [Suspect]
     Active Substance: LORATADINE
  11. OLANZAPINE [Suspect]
     Active Substance: OLANZAPINE

REACTIONS (1)
  - Febrile neutropenia [Unknown]
